FAERS Safety Report 6664303-2 (Version None)
Quarter: 2010Q2

REPORT INFORMATION
  Report Type: 
  Country: None (occurrence: None)
  Receive Date: 20100401
  Receipt Date: 20100323
  Transmission Date: 20101027
  Serious: Yes (Death)
  Sender: FDA-Public Use
  Company Number: MY-ELI_LILLY_AND_COMPANY-MY201003005928

PATIENT
  Sex: Male

DRUGS (4)
  1. ZYPREXA [Suspect]
     Indication: BIPOLAR DISORDER
     Dosage: 10 MG, 2/D
     Route: 048
     Dates: start: 20100307, end: 20100318
  2. CHLORPROMAZINE [Concomitant]
     Indication: AGITATION
     Dosage: 200 MG, 3/D
     Dates: start: 20100310, end: 20100318
  3. LORAZEPAM [Concomitant]
     Indication: SLEEP DISORDER
     Dosage: 1 MG, EACH EVENING
     Route: 048
     Dates: start: 20100307, end: 20100317
  4. ZELDOX [Concomitant]
     Indication: AGITATION
     Dosage: 20 MG, OTHER
     Route: 030
     Dates: start: 20100317, end: 20100317

REACTIONS (2)
  - DEATH [None]
  - DRUG INTERACTION [None]
